FAERS Safety Report 24780841 (Version 3)
Quarter: 2025Q1

REPORT INFORMATION
  Report Type: Report from Study
  Country: US (occurrence: US)
  Receive Date: 20241227
  Receipt Date: 20250116
  Transmission Date: 20250409
  Serious: Yes (Other)
  Sender: ABBVIE
  Company Number: US-ABBVIE-5971897

PATIENT
  Age: 47 Year
  Sex: Male
  Weight: 88 kg

DRUGS (3)
  1. SKYRIZI [Suspect]
     Active Substance: RISANKIZUMAB-RZAA
     Indication: Psoriasis
     Route: 058
     Dates: start: 20221021
  2. SKYRIZI [Suspect]
     Active Substance: RISANKIZUMAB-RZAA
     Route: 058
  3. INSULIN LISPRO [Concomitant]
     Active Substance: INSULIN LISPRO
     Indication: Hypertension

REACTIONS (8)
  - Exostosis [Recovering/Resolving]
  - Hernia [Recovered/Resolved]
  - Arthralgia [Recovering/Resolving]
  - Joint swelling [Recovering/Resolving]
  - Arthralgia [Unknown]
  - Pain [Unknown]
  - Hypertension [Unknown]
  - Cough [Unknown]

NARRATIVE: CASE EVENT DATE: 20240101
